FAERS Safety Report 21487682 (Version 1)
Quarter: 2022Q4

REPORT INFORMATION
  Report Type: Spontaneous
  Country: US (occurrence: None)
  Receive Date: 20221019
  Receipt Date: 20221019
  Transmission Date: 20230113
  Serious: Yes (Other)
  Sender: FDA-Public Use
  Company Number: None

PATIENT
  Age: 73 Year
  Sex: Female
  Weight: 67.5 kg

DRUGS (6)
  1. METHENAMINE\SODIUM SALICYLATE [Suspect]
     Active Substance: METHENAMINE\SODIUM SALICYLATE
     Route: 048
     Dates: start: 20220919, end: 20220922
  2. LEVOTHYROXINE [Concomitant]
     Active Substance: LEVOTHYROXINE
  3. LIOTHYROXINE [Concomitant]
  4. VITAMIN D [Concomitant]
     Active Substance: VITAMIN D NOS
  5. VITAMIN C [Concomitant]
     Active Substance: ASCORBIC ACID
  6. BIOTIN [Concomitant]
     Active Substance: BIOTIN

REACTIONS (3)
  - Abdominal pain upper [None]
  - Nausea [None]
  - Product use issue [None]

NARRATIVE: CASE EVENT DATE: 20220922
